FAERS Safety Report 7419480-2 (Version None)
Quarter: 2011Q1

REPORT INFORMATION
  Report Type: 
  Country: None (occurrence: None)
  Receive Date: 20110302
  Receipt Date: 20101109
  Transmission Date: 20110831
  Serious: No
  Sender: FDA-Public Use
  Company Number: 021768

PATIENT
  Sex: Female

DRUGS (3)
  1. CIMZIA [Suspect]
     Indication: RHEUMATOID ARTHRITIS
     Dosage: 200 MG 2X/WEEK SUBCUTANEOUS
     Route: 058
     Dates: start: 20100429
  2. WELLBUTRIN [Concomitant]
  3. CYMBALTA [Concomitant]

REACTIONS (3)
  - ANXIETY [None]
  - RHEUMATOID ARTHRITIS [None]
  - IRRITABILITY [None]
